FAERS Safety Report 18228733 (Version 1)
Quarter: 2020Q3

REPORT INFORMATION
  Report Type: Spontaneous
  Country: MX (occurrence: MX)
  Receive Date: 20200903
  Receipt Date: 20200903
  Transmission Date: 20201103
  Serious: Yes (Other)
  Sender: FDA-Public Use
  Company Number: NVSC2020MX242487

PATIENT
  Age: 7 Year
  Sex: Male

DRUGS (2)
  1. TOBRAMYCIN. [Interacting]
     Active Substance: TOBRAMYCIN
     Indication: CYSTIC FIBROSIS
     Dosage: UNK
     Route: 065
  2. VANCOMYCIN [Suspect]
     Active Substance: VANCOMYCIN
     Indication: CYSTIC FIBROSIS
     Dosage: UNK
     Route: 065

REACTIONS (4)
  - Product use in unapproved indication [Unknown]
  - Ototoxicity [Unknown]
  - Nephropathy toxic [Unknown]
  - Drug interaction [Unknown]
